FAERS Safety Report 11206258 (Version 1)
Quarter: 2015Q2

REPORT INFORMATION
  Report Type: Spontaneous
  Country: US (occurrence: US)
  Receive Date: 20150622
  Receipt Date: 20150622
  Transmission Date: 20150821
  Serious: No
  Sender: FDA-Public Use
  Company Number: US-TAKEDA-2011-03135

PATIENT
  Age: 72 Year
  Sex: Male
  Weight: 86.2 kg

DRUGS (5)
  1. NEURONTIN [Concomitant]
     Active Substance: GABAPENTIN
     Indication: NEUROPATHY PERIPHERAL
     Dosage: 300 MG, TID
     Dates: start: 201102, end: 201103
  2. LYRICA [Concomitant]
     Active Substance: PREGABALIN
     Indication: NEUROPATHY PERIPHERAL
     Dosage: 50 MG, TID
     Dates: start: 201103
  3. REVLIMID [Suspect]
     Active Substance: LENALIDOMIDE
     Indication: PLASMA CELL MYELOMA
     Dosage: 15 MG, CYCLIC
     Route: 048
     Dates: start: 20110328
  4. VELCADE [Suspect]
     Active Substance: BORTEZOMIB
     Indication: PLASMA CELL MYELOMA
  5. REVLIMID [Suspect]
     Active Substance: LENALIDOMIDE
     Dosage: 5 UNK, UNK
     Route: 048
     Dates: start: 201103, end: 20110429

REACTIONS (6)
  - Pruritus [Unknown]
  - Nasal ulcer [Unknown]
  - Stomatitis [Unknown]
  - Rash generalised [Recovered/Resolved]
  - Hordeolum [Unknown]
  - Eye infection [Unknown]

NARRATIVE: CASE EVENT DATE: 201103
